FAERS Safety Report 15069812 (Version 5)
Quarter: 2025Q3

REPORT INFORMATION
  Report Type: Report from Study
  Country: US (occurrence: US)
  Receive Date: 20180626
  Receipt Date: 20250702
  Transmission Date: 20251020
  Serious: Yes (Other)
  Sender: MYLAN
  Company Number: US-MYLANLABS-2018M1045724

PATIENT
  Age: 27 Year
  Sex: Female

DRUGS (3)
  1. AMNESTEEM [Suspect]
     Active Substance: ISOTRETINOIN
     Indication: Product used for unknown indication
     Dosage: 40 MG, BID
     Dates: start: 20180514, end: 20180612
  2. AMNESTEEM [Suspect]
     Active Substance: ISOTRETINOIN
     Dates: start: 20180301, end: 20180601
  3. AMNESTEEM [Suspect]
     Active Substance: ISOTRETINOIN
     Dates: start: 20180510, end: 20180614

REACTIONS (2)
  - Exposure during pregnancy [Recovered/Resolved]
  - Abortion induced [Recovered/Resolved]

NARRATIVE: CASE EVENT DATE: 20180612
